FAERS Safety Report 7525363-X (Version None)
Quarter: 2011Q2

REPORT INFORMATION
  Report Type: 
  Country: None (occurrence: None)
  Receive Date: 20110602
  Receipt Date: 20110602
  Transmission Date: 20111010
  Serious: Yes (Other)
  Sender: FDA-Public Use
  Company Number: None

PATIENT
  Age: 4 Year
  Sex: Male
  Weight: 38.5557 kg

DRUGS (2)
  1. TOPAMAX [Suspect]
     Dosage: ONE PO BID
     Route: 048
     Dates: start: 20011101, end: 20040201
  2. TOPAMAX [Suspect]
     Dosage: ONE PO BID
     Route: 048
     Dates: start: 20011101, end: 20040201

REACTIONS (2)
  - CONVULSION [None]
  - PRODUCT SUBSTITUTION ISSUE [None]
